FAERS Safety Report 6493436-9 (Version None)
Quarter: 2009Q4

REPORT INFORMATION
  Report Type: 
  Country: None (occurrence: None)
  Receive Date: 20091209
  Receipt Date: 20091124
  Transmission Date: 20100525
  Serious: Yes (Death, Life-Threatening, Hospitalization)
  Sender: FDA-Public Use
  Company Number: 2009003307

PATIENT
  Age: 62 Year
  Sex: Male

DRUGS (9)
  1. ERLOTINIB HYDROCHLORIDE [Suspect]
     Indication: NON-SMALL CELL LUNG CANCER
     Dosage: 150 MG, QD, ORAL
     Route: 048
     Dates: start: 20090819, end: 20090913
  2. CLARITHROMYCIN [Concomitant]
  3. MUCOSOLVAN (AMBROXOL HYDROCHLORIDE) [Concomitant]
  4. LANSOPRAZOLE [Concomitant]
  5. SPIRIVA [Concomitant]
  6. URSODIOL [Concomitant]
  7. BACTRIM [Concomitant]
  8. PREDNISOLONE [Concomitant]
  9. SEREVENT [Concomitant]

REACTIONS (5)
  - ABDOMINAL DISCOMFORT [None]
  - GENERAL PHYSICAL HEALTH DETERIORATION [None]
  - HEPATIC CANCER METASTATIC [None]
  - HYPERBILIRUBINAEMIA [None]
  - MALIGNANT NEOPLASM PROGRESSION [None]
